FAERS Safety Report 23214032 (Version 1)
Quarter: 2023Q4

REPORT INFORMATION
  Report Type: Spontaneous
  Country: US (occurrence: US)
  Receive Date: 20231121
  Receipt Date: 20231121
  Transmission Date: 20240109
  Serious: Yes (Hospitalization, Other)
  Sender: FDA-Public Use
  Company Number: US-TEVA-2023-US-2947789

PATIENT
  Sex: Male

DRUGS (1)
  1. UZEDY [Suspect]
     Active Substance: RISPERIDONE
     Indication: Product used for unknown indication
     Dosage: 200/0.56 MG/ML
     Route: 065
     Dates: start: 202309

REACTIONS (8)
  - Living in residential institution [Unknown]
  - Anaphylactic reaction [Recovered/Resolved]
  - Dystonia [Unknown]
  - Speech disorder [Recovered/Resolved]
  - Swollen tongue [Recovered/Resolved]
  - Joint stiffness [Recovered/Resolved]
  - Incorrect dose administered [Unknown]
  - Adverse event [Recovered/Resolved]

NARRATIVE: CASE EVENT DATE: 20230101
